FAERS Safety Report 25783046 (Version 3)
Quarter: 2025Q4

REPORT INFORMATION
  Report Type: Spontaneous
  Country: CH (occurrence: CH)
  Receive Date: 20250910
  Receipt Date: 20251020
  Transmission Date: 20260118
  Serious: Yes (Other)
  Sender: ALEXION PHARMACEUTICALS
  Company Number: CH-ASTRAZENECA-202509EEA003631CH

PATIENT
  Age: 80 Year
  Sex: Female

DRUGS (2)
  1. TICAGRELOR [Suspect]
     Active Substance: TICAGRELOR
     Indication: Myocardial infarction
     Dosage: UNK
     Route: 065
     Dates: start: 20240517, end: 20250517
  2. UNSPECIFIED INGREDIENT [Suspect]
     Active Substance: UNSPECIFIED INGREDIENT
     Indication: Depression
     Route: 065

REACTIONS (21)
  - Rheumatoid arthritis [Unknown]
  - Dizziness [Recovered/Resolved]
  - Vomiting [Recovered/Resolved]
  - Pain in extremity [Unknown]
  - Arthralgia [Unknown]
  - Pain in extremity [Unknown]
  - Anxiety [Unknown]
  - Fatigue [Unknown]
  - Polymyalgia rheumatica [Unknown]
  - Inflammation [Unknown]
  - Panic attack [Unknown]
  - Mental disorder [Unknown]
  - Stress [Unknown]
  - Myalgia [Unknown]
  - Muscle fatigue [Unknown]
  - Anxiety [Unknown]
  - Dermatitis contact [Unknown]
  - Cataract [Unknown]
  - Deafness [Unknown]
  - Dyspnoea [Unknown]
  - Hypertension [Unknown]

NARRATIVE: CASE EVENT DATE: 20240521
